FAERS Safety Report 14301287 (Version 1)
Quarter: 2017Q4

REPORT INFORMATION
  Report Type: Spontaneous
  Country: US (occurrence: US)
  Receive Date: 20171218
  Receipt Date: 20171218
  Transmission Date: 20180321
  Serious: Yes (Other)
  Sender: FDA-Public Use
  Company Number: None

PATIENT
  Age: 32 Year
  Sex: Female
  Weight: 57.61 kg

DRUGS (1)
  1. BUPRENORPHINE HYDROCHLORIDE AND NALOXONE HYDROCHLORIDE [Suspect]
     Active Substance: BUPRENORPHINE HYDROCHLORIDE\NALOXONE HYDROCHLORIDE
     Indication: DRUG DEPENDENCE
     Route: 048
     Dates: start: 20170911, end: 20171107

REACTIONS (4)
  - Therapy change [None]
  - Insomnia [None]
  - Anxiety [None]
  - Drug hypersensitivity [None]

NARRATIVE: CASE EVENT DATE: 20171120
